FAERS Safety Report 10269638 (Version 1)
Quarter: 2014Q2

REPORT INFORMATION
  Report Type: Spontaneous
  Country: US (occurrence: None)
  Receive Date: 20140626
  Receipt Date: 20140626
  Transmission Date: 20141212
  Serious: No
  Sender: FDA-Public Use
  Company Number: None

PATIENT
  Age: 55 Year
  Sex: Female
  Weight: 57.61 kg

DRUGS (1)
  1. LORAZEPAM [Suspect]
     Indication: INSOMNIA
     Dosage: 1/2 TO 1 PILL AT BEDTIME AS NEEDED TAKEN BY MOUTH
     Route: 048
     Dates: start: 20130927, end: 20140621

REACTIONS (5)
  - Insomnia [None]
  - Agitation [None]
  - Anxiety [None]
  - No therapeutic response [None]
  - Product quality issue [None]
